FAERS Safety Report 15795200 (Version 1)
Quarter: 2019Q1

REPORT INFORMATION
  Report Type: Spontaneous
  Country: US (occurrence: US)
  Receive Date: 20190107
  Receipt Date: 20190107
  Transmission Date: 20190417
  Serious: Yes (Other)
  Sender: FDA-Public Use
  Company Number: None

PATIENT
  Age: 71 Year
  Sex: Female
  Weight: 56.97 kg

DRUGS (11)
  1. FUROSEMIDE. [Concomitant]
     Active Substance: FUROSEMIDE
  2. FISH OIL [Concomitant]
     Active Substance: FISH OIL
  3. ASPIRIN LOW DOSE [Concomitant]
     Active Substance: ASPIRIN
  4. METOPROLOL TARTRATE. [Concomitant]
     Active Substance: METOPROLOL TARTRATE
  5. LEVOTHYROXINE. [Concomitant]
     Active Substance: LEVOTHYROXINE
  6. ALLOPURINOL. [Concomitant]
     Active Substance: ALLOPURINOL
  7. NOVOLOG MIX 70/30 [Concomitant]
     Active Substance: INSULIN ASPART
  8. LATANOPROST. [Concomitant]
     Active Substance: LATANOPROST
  9. CAPECITABINE. [Suspect]
     Active Substance: CAPECITABINE
     Indication: BREAST CANCER
     Route: 048
     Dates: start: 20180424
  10. CALCIUM WITH D [Concomitant]
     Active Substance: CALCIUM\VITAMIN D
  11. MULTIVITAMIN ADULT [Concomitant]

REACTIONS (1)
  - Disease progression [None]
